FAERS Safety Report 5447648-3 (Version None)
Quarter: 2007Q3

REPORT INFORMATION
  Report Type: 
  Country: None (occurrence: None)
  Receive Date: 20070910
  Receipt Date: 20070830
  Transmission Date: 20080115
  Serious: Yes (Other)
  Sender: FDA-Public Use
  Company Number: IE-ROCHE-505554

PATIENT
  Age: 55 Year
  Sex: Female

DRUGS (5)
  1. BONIVA [Suspect]
     Indication: OSTEOPOROSIS
     Dosage: SINGLE DOSE WAS RECEIVED IN JUNE 2006.
     Route: 048
     Dates: start: 20060601, end: 20060719
  2. AULIN [Concomitant]
     Indication: TOOTH REPAIR
     Dates: start: 20060605
  3. ACTONEL [Concomitant]
     Indication: OSTEOPOROSIS
     Dates: start: 20040101, end: 20060101
  4. CALCICHEW [Concomitant]
     Indication: OSTEOPOROSIS
  5. DIDRONEL [Concomitant]
     Indication: OSTEOPOROSIS
     Dates: start: 20000101, end: 20040101

REACTIONS (7)
  - ABDOMINAL DISCOMFORT [None]
  - ABDOMINAL PAIN UPPER [None]
  - BILIRUBIN URINE [None]
  - GINGIVAL INFECTION [None]
  - HEPATITIS CHRONIC ACTIVE [None]
  - JAUNDICE [None]
  - LIVER FUNCTION TEST ABNORMAL [None]
